FAERS Safety Report 17555653 (Version 1)
Quarter: 2020Q1

REPORT INFORMATION
  Report Type: Spontaneous
  Country: US (occurrence: US)
  Receive Date: 20200310
  Receipt Date: 20200310
  Transmission Date: 20200409
  Serious: Yes (Hospitalization)
  Sender: FDA-Public Use
  Company Number: None

PATIENT
  Age: 81 Year
  Sex: Male
  Weight: 77 kg

DRUGS (1)
  1. LORAZEPAM (LORAZEPAM 2MG/ML INJ) [Suspect]
     Active Substance: LORAZEPAM
     Route: 030
     Dates: start: 20191205, end: 20191205

REACTIONS (4)
  - Confusional state [None]
  - Agitation [None]
  - Delirium [None]
  - Aggression [None]

NARRATIVE: CASE EVENT DATE: 20191205
